FAERS Safety Report 23750043 (Version 1)
Quarter: 2024Q2

REPORT INFORMATION
  Report Type: Spontaneous
  Country: RU (occurrence: None)
  Receive Date: 20240417
  Receipt Date: 20240417
  Transmission Date: 20240716
  Serious: Yes (Hospitalization, Other)
  Sender: FDA-Public Use
  Company Number: 2024A085376

PATIENT
  Sex: Female

DRUGS (1)
  1. PULMICORT TURBUHALER [Suspect]
     Active Substance: BUDESONIDE
     Indication: Asthma
     Route: 055

REACTIONS (3)
  - Asphyxia [Unknown]
  - Therapeutic product ineffective for unapproved indication [Unknown]
  - Off label use [Unknown]
